FAERS Safety Report 4609173-9 (Version None)
Quarter: 2005Q1

REPORT INFORMATION
  Report Type: 
  Country: None (occurrence: None)
  Receive Date: 20050315
  Receipt Date: 20041013
  Transmission Date: 20050727
  Serious: Yes (Hospitalization, Other)
  Sender: FDA-Public Use
  Company Number: NZ-MERCK-0410NZL00062

PATIENT
  Age: 67 Year
  Sex: Female
  Weight: 85 kg

DRUGS (3)
  1. VIOXX [Suspect]
     Indication: ARTHRITIS
     Route: 048
     Dates: start: 20020101, end: 20040501
  2. CHONDROITIN SULFATE SODIUM AND DIMETHYL SULFONE AND GLUCOSAMINE [Concomitant]
     Indication: ARTHRITIS
     Route: 048
     Dates: start: 20030101
  3. ASPIRIN [Concomitant]
     Indication: PROPHYLAXIS
     Route: 048
     Dates: start: 19960101

REACTIONS (5)
  - ARTHROPATHY [None]
  - CARDIAC FIBRILLATION [None]
  - CEREBROVASCULAR ACCIDENT [None]
  - EYE DISORDER [None]
  - EYE INJURY [None]
